FAERS Safety Report 8795322 (Version 2)
Quarter: 2015Q1

REPORT INFORMATION
  Report Type: Report from Study
  Country: US (occurrence: US)
  Receive Date: 20120918
  Receipt Date: 20150205
  Transmission Date: 20150721
  Serious: Yes (Death)
  Sender: FDA-Public Use
  Company Number: US-ROCHE-1129249

PATIENT
  Sex: Male

DRUGS (6)
  1. ALOXI [Concomitant]
     Active Substance: PALONOSETRON HYDROCHLORIDE
     Route: 042
  2. AVASTIN [Suspect]
     Active Substance: BEVACIZUMAB
     Indication: PROSTATE CANCER
     Dosage: ONCE
     Route: 042
  3. GEMZAR [Concomitant]
     Active Substance: GEMCITABINE HYDROCHLORIDE
     Route: 042
  4. DECADRON [Concomitant]
     Active Substance: DEXAMETHASONE
     Route: 042
  5. AVASTIN [Suspect]
     Active Substance: BEVACIZUMAB
     Route: 042
  6. AREDIA [Concomitant]
     Active Substance: PAMIDRONATE DISODIUM
     Route: 042

REACTIONS (2)
  - Death [Fatal]
  - Off label use [Unknown]
